FAERS Safety Report 4553166-7 (Version None)
Quarter: 2005Q1

REPORT INFORMATION
  Report Type: 
  Country: None (occurrence: None)
  Receive Date: 20050112
  Receipt Date: 20041222
  Transmission Date: 20050727
  Serious: Yes (Hospitalization)
  Sender: FDA-Public Use
  Company Number: USA041286795

PATIENT
  Age: 35 Year
  Sex: Female
  Weight: 52 kg

DRUGS (7)
  1. CYMBALTA [Suspect]
     Indication: MYALGIA
     Dosage: 30 MG DAY
     Dates: start: 20041210, end: 20041215
  2. VICODIN [Concomitant]
  3. TRAMADOL HCL [Concomitant]
  4. ZANAFLEX [Concomitant]
  5. PEPTO-BISMOL (BISMUTH SUBSALICYLATE) [Concomitant]
  6. ALUMINUM HYDROXIDE AND MAGNESIUM TRISILICATE [Concomitant]
  7. MULTIVITAMIN [Concomitant]

REACTIONS (15)
  - ABDOMINAL PAIN UPPER [None]
  - ALCOHOL USE [None]
  - BLOOD PRESSURE FLUCTUATION [None]
  - BODY TEMPERATURE INCREASED [None]
  - CONTUSION [None]
  - DIARRHOEA [None]
  - DYSKINESIA [None]
  - FACE OEDEMA [None]
  - FEELING ABNORMAL [None]
  - HAEMORRHAGE [None]
  - INSOMNIA [None]
  - MEDICATION ERROR [None]
  - MUSCLE SPASMS [None]
  - SKIN HAEMORRHAGE [None]
  - TREATMENT NONCOMPLIANCE [None]
